FAERS Safety Report 10309036 (Version 2)
Quarter: 2014Q3

REPORT INFORMATION
  Report Type: Spontaneous
  Country: US (occurrence: US)
  Receive Date: 20140716
  Receipt Date: 20140801
  Transmission Date: 20150326
  Serious: No
  Sender: FDA-Public Use
  Company Number: US-PFIZER INC-2014195807

PATIENT
  Age: 68 Year
  Sex: Female
  Weight: 97.51 kg

DRUGS (4)
  1. DILAUDID [Concomitant]
     Active Substance: HYDROMORPHONE HYDROCHLORIDE
     Dosage: 4 MG (? -1 TAB) BID PRN
     Route: 048
  2. LYRICA [Suspect]
     Active Substance: PREGABALIN
     Indication: FIBROMYALGIA
     Dosage: 75 MG 1 CAPSULE, 3X/DAY
     Route: 048
     Dates: start: 20140313, end: 2014
  3. LYRICA [Suspect]
     Active Substance: PREGABALIN
     Indication: NEURALGIA
  4. LYRICA [Suspect]
     Active Substance: PREGABALIN
     Indication: DIABETIC NEUROPATHY

REACTIONS (7)
  - Feeling abnormal [Unknown]
  - Muscular weakness [Unknown]
  - Euphoric mood [Unknown]
  - Discomfort [Unknown]
  - Drug intolerance [Unknown]
  - Gait disturbance [Unknown]
  - Hypokinesia [Unknown]
